FAERS Safety Report 24318835 (Version 2)
Quarter: 2024Q3

REPORT INFORMATION
  Report Type: Spontaneous
  Country: AL (occurrence: AL)
  Receive Date: 20240913
  Receipt Date: 20240917
  Transmission Date: 20241016
  Serious: Yes (Life-Threatening, Hospitalization, Other)
  Sender: PFIZER
  Company Number: AL-MLMSERVICE-20240903-PI179998-00254-1

PATIENT
  Age: 22 Year
  Sex: Female

DRUGS (5)
  1. DOSTINEX [Suspect]
     Active Substance: CABERGOLINE
     Indication: Prolactin-producing pituitary tumour
     Dosage: 0.5 MG EVERY 2 DAYS
  2. OXYMETAZOLINE [Suspect]
     Active Substance: OXYMETAZOLINE
     Indication: Haemorrhage prophylaxis
     Dosage: UNK; SEVERAL INTRANASAL PUFFS
     Route: 045
  3. OXYMETAZOLINE [Suspect]
     Active Substance: OXYMETAZOLINE
     Indication: Nasal decongestion therapy
  4. REMIFENTANIL [Concomitant]
     Active Substance: REMIFENTANIL
     Indication: Induction of anaesthesia
     Dosage: 0.3 UG/KG/MIN
     Route: 042
  5. PROPOFOL [Concomitant]
     Active Substance: PROPOFOL
     Indication: Induction of anaesthesia
     Dosage: 100 UG/KG/MIN
     Route: 042

REACTIONS (2)
  - Procedural hypertension [Recovered/Resolved]
  - Stress cardiomyopathy [Recovered/Resolved]
